FAERS Safety Report 6111301-3 (Version None)
Quarter: 2009Q1

REPORT INFORMATION
  Report Type: 
  Country: None (occurrence: None)
  Receive Date: 20090310
  Receipt Date: 20090310
  Transmission Date: 20090719
  Serious: No
  Sender: FDA-Public Use
  Company Number: None

PATIENT
  Age: 67 Year
  Sex: Female
  Weight: 79.8331 kg

DRUGS (1)
  1. ZOLEDRONIC ACID [Suspect]
     Indication: OSTEOPOROSIS
     Dosage: 5 MG ONCE IV BOLUS
     Route: 040
     Dates: start: 20081229, end: 20090309

REACTIONS (3)
  - DRUG INEFFECTIVE [None]
  - RASH [None]
  - SKIN DISCOLOURATION [None]
